FAERS Safety Report 12670940 (Version 2)
Quarter: 2016Q3

REPORT INFORMATION
  Report Type: Spontaneous
  Country: US (occurrence: US)
  Receive Date: 20160822
  Receipt Date: 20160825
  Transmission Date: 20161109
  Serious: No
  Sender: FDA-Public Use
  Company Number: US-HORIZON-RAV-0162-2016

PATIENT
  Age: 13 Year
  Sex: Female

DRUGS (2)
  1. RAVICTI [Suspect]
     Active Substance: GLYCEROL PHENYLBUTYRATE
     Indication: ORNITHINE TRANSCARBAMOYLASE DEFICIENCY
     Dosage: 3 ML THREE TIMES DAILY
     Dates: start: 20160102
  2. CITRULLINE [Concomitant]
     Active Substance: CITRULLINE

REACTIONS (1)
  - Amino acid level abnormal [Recovered/Resolved]
